FAERS Safety Report 10494349 (Version 1)
Quarter: 2014Q4

REPORT INFORMATION
  Report Type: Spontaneous
  Country: US (occurrence: None)
  Receive Date: 20141002
  Receipt Date: 20141002
  Transmission Date: 20150528
  Serious: Yes (Other)
  Sender: FDA-Public Use
  Company Number: None

PATIENT
  Age: 31 Year
  Sex: Female
  Weight: 49.9 kg

DRUGS (2)
  1. LINZESS [Suspect]
     Active Substance: LINACLOTIDE
     Indication: CONSTIPATION
     Route: 048
     Dates: start: 20140923, end: 20140928
  2. LINZESS [Suspect]
     Active Substance: LINACLOTIDE
     Indication: PAINFUL DEFAECATION
     Route: 048
     Dates: start: 20140923, end: 20140928

REACTIONS (4)
  - Contusion [None]
  - Nodule [None]
  - Drug interaction [None]
  - Pain [None]

NARRATIVE: CASE EVENT DATE: 20140923
